FAERS Safety Report 5510710-0 (Version None)
Quarter: 2007Q4

REPORT INFORMATION
  Report Type: 
  Country: None (occurrence: None)
  Receive Date: 20071108
  Receipt Date: 20071101
  Transmission Date: 20080405
  Serious: Yes (Hospitalization)
  Sender: FDA-Public Use
  Company Number: A0691047A

PATIENT
  Sex: Female

DRUGS (3)
  1. WELLBUTRIN [Suspect]
     Indication: DEPRESSION
     Route: 048
  2. WELLBUTRIN XL [Suspect]
     Indication: DEPRESSION
     Route: 048
  3. NO CONCURRENT MEDICATION [Concomitant]

REACTIONS (7)
  - ABNORMAL SENSATION IN EYE [None]
  - BLINDNESS [None]
  - OPTIC ISCHAEMIC NEUROPATHY [None]
  - OSTEOMYELITIS [None]
  - VISION BLURRED [None]
  - VISUAL ACUITY REDUCED [None]
  - VISUAL DISTURBANCE [None]
